FAERS Safety Report 7236351-5 (Version None)
Quarter: 2011Q1

REPORT INFORMATION
  Report Type: 
  Country: None (occurrence: None)
  Receive Date: 20110120
  Receipt Date: 20110110
  Transmission Date: 20110831
  Serious: Yes (Hospitalization)
  Sender: FDA-Public Use
  Company Number: GXKR2011DK00547

PATIENT
  Sex: Male

DRUGS (1)
  1. SIMVASTATIN [Suspect]
     Indication: HYPERCHOLESTEROLAEMIA
     Dosage: 40 MG
     Route: 048
     Dates: start: 20100101, end: 20101125

REACTIONS (4)
  - MUSCLE ATROPHY [None]
  - COGNITIVE DISORDER [None]
  - CONFUSIONAL STATE [None]
  - MALAISE [None]
